FAERS Safety Report 5207534-0 (Version None)
Quarter: 2006Q4

REPORT INFORMATION
  Report Type: 
  Country: None (occurrence: None)
  Receive Date: 20061030
  Receipt Date: 20060720
  Transmission Date: 20070319
  Serious: No
  Sender: FDA-Public Use
  Company Number: 2006CT000642

PATIENT
  Age: 52 Year
  Sex: Female
  Weight: 89.8 kg

DRUGS (19)
  1. VENTAVIS [Suspect]
     Indication: PULMONARY HYPERTENSION
     Dosage: SEE IMAGE
     Route: 055
     Dates: start: 20060720, end: 20060720
  2. VENTAVIS [Suspect]
     Indication: PULMONARY HYPERTENSION
     Dosage: SEE IMAGE
     Route: 055
     Dates: start: 20060720, end: 20060720
  3. VENTAVIS [Suspect]
     Indication: PULMONARY HYPERTENSION
     Dosage: SEE IMAGE
     Route: 055
     Dates: start: 20060720
  4. TRACLEER [Concomitant]
  5. OXACARBAZEPINE [Concomitant]
  6. ASPIRIN [Concomitant]
  7. PANTOPRAZOLE SODIUM [Concomitant]
  8. TOPAMAX [Concomitant]
  9. LASIX [Concomitant]
  10. NEURONTIN [Concomitant]
  11. MEVACOR [Concomitant]
  12. ZESTRIL [Concomitant]
  13. WELLBUTRIN [Concomitant]
  14. CLONIDINE [Concomitant]
  15. ALDACTONE [Concomitant]
  16. WARFARIN SODIUM [Concomitant]
  17. GLIPIZIDE [Concomitant]
  18. RISPERDAL [Concomitant]
  19. POTASSIUM CHLORIDE [Concomitant]

REACTIONS (1)
  - PAIN IN EXTREMITY [None]
